FAERS Safety Report 25189922 (Version 1)
Quarter: 2025Q2

REPORT INFORMATION
  Report Type: Spontaneous
  Country: US (occurrence: US)
  Receive Date: 20250411
  Receipt Date: 20250411
  Transmission Date: 20250716
  Serious: No
  Sender: LUPIN
  Company Number: US-LUPIN PHARMACEUTICALS INC.-2025-02957

PATIENT
  Age: 81 Year

DRUGS (3)
  1. BUDESONIDE [Suspect]
     Active Substance: BUDESONIDE
     Indication: Product used for unknown indication
  2. ALBUTEROL [Concomitant]
     Active Substance: ALBUTEROL
     Indication: Product used for unknown indication
     Route: 065
  3. ARFORMOTEROL TARTRATE [Concomitant]
     Active Substance: ARFORMOTEROL TARTRATE
     Indication: Product used for unknown indication
     Route: 065

REACTIONS (1)
  - Off label use [Unknown]
